FAERS Safety Report 5035131-9 (Version None)
Quarter: 2006Q2

REPORT INFORMATION
  Report Type: 
  Country: None (occurrence: None)
  Receive Date: 20060519
  Receipt Date: 20060329
  Transmission Date: 20061013
  Serious: No
  Sender: FDA-Public Use
  Company Number: TPA2005A01676

PATIENT
  Age: 55 Year
  Sex: Male

DRUGS (5)
  1. ROZEREM [Suspect]
     Indication: INSOMNIA
     Dosage: 8 MG, HS, PER ORAL
     Route: 048
     Dates: start: 20051208, end: 20060201
  2. LAMICTAL [Concomitant]
  3. ZOCOR [Concomitant]
  4. ATIVAN (LORAZEPAM) (2 MILLIGRAM) [Concomitant]
  5. LEXAPRO [Concomitant]

REACTIONS (1)
  - RASH [None]
